FAERS Safety Report 18451016 (Version 1)
Quarter: 2020Q4

REPORT INFORMATION
  Report Type: Spontaneous
  Country: US (occurrence: US)
  Receive Date: 20201030
  Receipt Date: 20201030
  Transmission Date: 20210114
  Serious: Yes (Life-Threatening, Disabling, Other)
  Sender: FDA-Public Use
  Company Number: None

PATIENT
  Age: 86 Year
  Sex: Female
  Weight: 59.87 kg

DRUGS (5)
  1. RECLAST [Suspect]
     Active Substance: ZOLEDRONIC ACID
     Indication: OSTEOPOROSIS
     Dosage: ?          QUANTITY:1 DF DOSAGE FORM;OTHER FREQUENCY:ONCE A YEAR FOR 3 ;?
     Route: 058
     Dates: start: 20200603
  2. TYLENOL [Concomitant]
     Active Substance: ACETAMINOPHEN
  3. PROBIOTIC [Concomitant]
     Active Substance: PROBIOTICS NOS
  4. CENTRUM SILVER-WOMEN [Concomitant]
  5. FAMOTIDINE. [Concomitant]
     Active Substance: FAMOTIDINE

REACTIONS (7)
  - Incontinence [None]
  - Gastrooesophageal reflux disease [None]
  - Gingival swelling [None]
  - Rash [None]
  - Mouth ulceration [None]
  - Keratitis [None]
  - Tooth disorder [None]

NARRATIVE: CASE EVENT DATE: 20200603
